FAERS Safety Report 4402964-9 (Version None)
Quarter: 2004Q3

REPORT INFORMATION
  Report Type: 
  Country: None (occurrence: None)
  Receive Date: 20040721
  Receipt Date: 20030716
  Transmission Date: 20050211
  Serious: No
  Sender: FDA-Public Use
  Company Number: US-GLAXOSMITHKLINE-A0417855A

PATIENT
  Sex: Female

DRUGS (5)
  1. IMITREX [Suspect]
     Indication: MIGRAINE
     Route: 048
     Dates: start: 19980101
  2. PREMARIN [Concomitant]
  3. LEVOXYL [Concomitant]
  4. NORTRIPTYLINE HCL [Concomitant]
  5. PROTONIX [Concomitant]

REACTIONS (1)
  - DRUG INEFFECTIVE [None]
